FAERS Safety Report 9656609 (Version 1)
Quarter: 2013Q4

REPORT INFORMATION
  Report Type: Spontaneous
  Country: US (occurrence: None)
  Receive Date: 20131029
  Receipt Date: 20131029
  Transmission Date: 20140711
  Serious: Yes (Other)
  Sender: FDA-Public Use
  Company Number: None

PATIENT
  Age: 80 Year
  Sex: Male

DRUGS (1)
  1. ERIVEDGE [Suspect]
     Indication: SKIN CANCER
     Route: 048
     Dates: start: 20130905, end: 20131021

REACTIONS (5)
  - Decreased appetite [None]
  - Asthenia [None]
  - Muscle spasms [None]
  - Muscle spasms [None]
  - Activities of daily living impaired [None]
